FAERS Safety Report 6239884-3 (Version None)
Quarter: 2009Q2

REPORT INFORMATION
  Report Type: 
  Country: None (occurrence: None)
  Receive Date: 20090619
  Receipt Date: 20090605
  Transmission Date: 20091009
  Serious: Yes (Hospitalization, Other)
  Sender: FDA-Public Use
  Company Number: DSU-2009-01192

PATIENT
  Age: 64 Year
  Sex: Male
  Weight: 106.5953 kg

DRUGS (3)
  1. BENICAR HCT [Suspect]
     Indication: HYPERTENSION
     Dosage: 40/12.5 MG (QD), PER ORAL
     Route: 048
     Dates: start: 20050101
  2. ATENOLOL [Concomitant]
  3. FLOMAX [Concomitant]

REACTIONS (3)
  - GAIT DISTURBANCE [None]
  - GOUT [None]
  - RENAL CANCER [None]
